FAERS Safety Report 7513808-0 (Version None)
Quarter: 2011Q2

REPORT INFORMATION
  Report Type: 
  Country: None (occurrence: None)
  Receive Date: 20110531
  Receipt Date: 20110524
  Transmission Date: 20111010
  Serious: Yes (Other)
  Sender: FDA-Public Use
  Company Number: PHHY2011GB45649

PATIENT
  Age: 72 Year
  Sex: Male

DRUGS (3)
  1. CYCLOSPORINE [Suspect]
     Dosage: UNK
  2. COTRIM [Suspect]
     Indication: PNEUMOCYSTIS JIROVECI PNEUMONIA
     Dosage: 3840 MG, BID
     Route: 042
  3. MYCOPHENOLATE MEFETIL [Suspect]
     Dosage: UNK

REACTIONS (8)
  - COUGH [None]
  - PSYCHOTIC DISORDER [None]
  - AGGRESSION [None]
  - DYSPNOEA [None]
  - CONFUSIONAL STATE [None]
  - TEARFULNESS [None]
  - EXERCISE TOLERANCE DECREASED [None]
  - PNEUMOCYSTIS JIROVECI PNEUMONIA [None]
